FAERS Safety Report 12256668 (Version 1)
Quarter: 2016Q2

REPORT INFORMATION
  Report Type: Spontaneous
  Country: GB (occurrence: GB)
  Receive Date: 20160412
  Receipt Date: 20160412
  Transmission Date: 20160815
  Serious: Yes (Other)
  Sender: FDA-Public Use
  Company Number: GB-JNJFOC-20160402729

PATIENT
  Age: 49 Year
  Sex: Female
  Weight: 47 kg

DRUGS (2)
  1. PSEUDOEPHEDRINE HYDROCHLORIDE. [Suspect]
     Active Substance: PSEUDOEPHEDRINE HYDROCHLORIDE
     Route: 065
  2. PSEUDOEPHEDRINE HYDROCHLORIDE. [Suspect]
     Active Substance: PSEUDOEPHEDRINE HYDROCHLORIDE
     Indication: SINUS CONGESTION
     Dosage: 1 DOSE (UNSPECIFIED UNIT). 1 DOSE EVERY 4 HOURS. CUMULATIVE DOSE: 6.0 (UNITS UNSPECIFIED).
     Route: 065
     Dates: start: 20160321, end: 20160322

REACTIONS (5)
  - Headache [Not Recovered/Not Resolved]
  - Dysgeusia [Unknown]
  - Thirst [Unknown]
  - Dry mouth [Recovering/Resolving]
  - Vomiting [Recovered/Resolved]

NARRATIVE: CASE EVENT DATE: 20160322
